FAERS Safety Report 4782275-2 (Version None)
Quarter: 2005Q3

REPORT INFORMATION
  Report Type: 
  Country: None (occurrence: None)
  Receive Date: 20050929
  Receipt Date: 20050921
  Transmission Date: 20060218
  Serious: Yes (Hospitalization)
  Sender: FDA-Public Use
  Company Number: GB-BOEHRINGER INGELHEIM PHARMACEUTICALS, INC.-2005-UK-01814UK

PATIENT
  Age: 41 Year
  Sex: Male

DRUGS (7)
  1. NEVIRAPINE [Suspect]
     Indication: HIV TEST POSITIVE
     Route: 065
     Dates: start: 19981201, end: 20031101
  2. ZERIT [Suspect]
     Indication: HIV TEST POSITIVE
     Route: 048
     Dates: start: 19981201, end: 20031101
  3. VIDEX [Suspect]
     Indication: HIV TEST POSITIVE
     Route: 048
     Dates: start: 20031101
  4. LOPINAVIR [Suspect]
     Indication: HIV TEST POSITIVE
     Route: 065
     Dates: start: 20031101
  5. RITONAVIR [Suspect]
     Indication: HIV TEST POSITIVE
     Route: 065
     Dates: start: 20031101
  6. TENOFOVIR DISOPROXIL [Suspect]
     Indication: HIV TEST POSITIVE
     Route: 065
     Dates: start: 20031101, end: 20040801
  7. REYATAZ [Concomitant]
     Indication: HIV TEST POSITIVE
     Dosage: 300 MG ONCE DAILY
     Route: 065
     Dates: start: 20040801

REACTIONS (5)
  - DRUG RESISTANCE [None]
  - NAUSEA [None]
  - PNEUMOCYSTIS JIROVECI PNEUMONIA [None]
  - TREATMENT NONCOMPLIANCE [None]
  - VIRAL LOAD INCREASED [None]
